FAERS Safety Report 8120767-9 (Version None)
Quarter: 2012Q1

REPORT INFORMATION
  Report Type: 
  Country: None (occurrence: None)
  Receive Date: 20120207
  Receipt Date: 20120131
  Transmission Date: 20120608
  Serious: Yes (Other)
  Sender: FDA-Public Use
  Company Number: US-ASTRAZENECA-2008UW20481

PATIENT
  Age: 83 Year
  Sex: Female

DRUGS (3)
  1. TOPROL-XL [Suspect]
     Route: 048
  2. METAMUCIL-2 [Concomitant]
  3. ARIMIDEX [Suspect]
     Route: 048
     Dates: start: 20080701

REACTIONS (4)
  - FALL [None]
  - ARTHRITIS [None]
  - BREAST CANCER [None]
  - GAIT DISTURBANCE [None]
